FAERS Safety Report 9264153 (Version 1)
Quarter: 2013Q2

REPORT INFORMATION
  Report Type: Spontaneous
  Country: US (occurrence: US)
  Receive Date: 20130430
  Receipt Date: 20130430
  Transmission Date: 20140414
  Serious: Yes (Other)
  Sender: FDA-Public Use
  Company Number: US-ABBOTT-13P-163-1079796-00

PATIENT
  Age: 19 Year
  Sex: Male
  Weight: 83.99 kg

DRUGS (4)
  1. HUMIRA [Suspect]
     Indication: JUVENILE IDIOPATHIC ARTHRITIS
     Route: 058
     Dates: start: 200603, end: 200707
  2. HUMIRA [Suspect]
     Indication: JUVENILE IDIOPATHIC ARTHRITIS
     Route: 058
     Dates: start: 200707
  3. METHOTREXATE [Concomitant]
     Indication: JUVENILE IDIOPATHIC ARTHRITIS
  4. FOLIC ACID [Concomitant]
     Indication: VITAMIN SUPPLEMENTATION

REACTIONS (1)
  - Testicular disorder [Recovered/Resolved]
